FAERS Safety Report 4549293-0 (Version None)
Quarter: 2004Q4

REPORT INFORMATION
  Report Type: 
  Country: None (occurrence: None)
  Receive Date: 20041230
  Receipt Date: 20040609
  Transmission Date: 20050328
  Serious: Yes (Hospitalization)
  Sender: FDA-Public Use
  Company Number: 04-06-0848

PATIENT
  Age: 50 Year
  Sex: Female

DRUGS (1)
  1. CLOZAPINE [Suspect]
     Dosage: 250MG QD ORAL
     Route: 048
     Dates: start: 20010901

REACTIONS (1)
  - HOSPITALISATION [None]
